FAERS Safety Report 17469346 (Version 1)
Quarter: 2020Q1

REPORT INFORMATION
  Report Type: Spontaneous
  Country: US (occurrence: US)
  Receive Date: 20200227
  Receipt Date: 20200227
  Transmission Date: 20200409
  Serious: Yes (Hospitalization)
  Sender: FDA-Public Use
  Company Number: US-VERTEX PHARMACEUTICALS-2020-003473

PATIENT
  Sex: Female

DRUGS (17)
  1. PROBIOTIC BLEND [Concomitant]
  2. TRAMADOL. [Concomitant]
     Active Substance: TRAMADOL
  3. ELIQUIS [Concomitant]
     Active Substance: APIXABAN
  4. CYPROHEPTADINE HCL [Concomitant]
     Active Substance: CYPROHEPTADINE HYDROCHLORIDE
  5. COLCRYS [Concomitant]
     Active Substance: COLCHICINE
  6. IPRATROPIUM BROMIDE. [Concomitant]
     Active Substance: IPRATROPIUM BROMIDE
  7. TOBI [Concomitant]
     Active Substance: TOBRAMYCIN
  8. NEXIUM [Concomitant]
     Active Substance: ESOMEPRAZOLE MAGNESIUM
  9. KALYDECO [Suspect]
     Active Substance: IVACAFTOR
     Indication: CYSTIC FIBROSIS
     Dosage: 150 MG, BID
     Route: 048
     Dates: start: 20130901
  10. MELATONIN [Concomitant]
     Active Substance: MELATONIN
  11. GABAPENTIN. [Concomitant]
     Active Substance: GABAPENTIN
  12. CITRACAL + D [CALCIUM CITRATE;COLECALCIFEROL] [Concomitant]
     Active Substance: CALCIUM CITRATE\CHOLECALCIFEROL
  13. CAYSTON [Concomitant]
     Active Substance: AZTREONAM
  14. ONDANSETRON [Concomitant]
     Active Substance: ONDANSETRON
  15. FLUTICASONE PROPIONATE. [Concomitant]
     Active Substance: FLUTICASONE PROPIONATE
  16. DUPIXENT [Concomitant]
     Active Substance: DUPILUMAB
  17. LEVOFLOXACIN. [Concomitant]
     Active Substance: LEVOFLOXACIN

REACTIONS (1)
  - Infective pulmonary exacerbation of cystic fibrosis [Unknown]
